FAERS Safety Report 6603702-1 (Version None)
Quarter: 2010Q1

REPORT INFORMATION
  Report Type: 
  Country: None (occurrence: None)
  Receive Date: 20100226
  Receipt Date: 20100215
  Transmission Date: 20100710
  Serious: Yes (Death, Hospitalization)
  Sender: FDA-Public Use
  Company Number: FR-PFIZER INC-2010019387

PATIENT
  Age: 59 Year
  Sex: Male

DRUGS (3)
  1. SUTENT [Suspect]
     Indication: THYROID CANCER
     Dosage: UNK
     Route: 048
     Dates: start: 20081201, end: 20100127
  2. EUTHYRAL [Concomitant]
     Dosage: 1 DF, 1X/DAY
     Route: 048
  3. LEVOTHYROX [Concomitant]
     Dosage: 50 UG, 1X/DAY

REACTIONS (2)
  - HEPATITIS FULMINANT [None]
  - THROMBOCYTOPENIA [None]
